FAERS Safety Report 4358493-4 (Version None)
Quarter: 2004Q2

REPORT INFORMATION
  Report Type: 
  Country: None (occurrence: None)
  Receive Date: 20040511
  Receipt Date: 20040427
  Transmission Date: 20050107
  Serious: Yes (Disabling)
  Sender: FDA-Public Use
  Company Number: 2004025035

PATIENT
  Age: 79 Year
  Sex: Male

DRUGS (5)
  1. CARDURA [Suspect]
     Indication: MYOCARDIAL ISCHAEMIA
     Dosage: 8 MG (1 IN 1 D), ORAL
     Route: 048
     Dates: start: 20030307
  2. MIRTAZAPINE [Suspect]
     Indication: DEPRESSION
     Dosage: 30 MG (1 IN 1 D)
     Dates: start: 20040312
  3. SIMVASTATIN [Concomitant]
  4. ATENOLOL [Concomitant]
  5. DILTIAZEM [Concomitant]

REACTIONS (2)
  - BLINDNESS UNILATERAL [None]
  - VISION BLURRED [None]
